FAERS Safety Report 14410537 (Version 1)
Quarter: 2018Q1

REPORT INFORMATION
  Report Type: Spontaneous
  Country: US (occurrence: US)
  Receive Date: 20180116
  Receipt Date: 20180116
  Transmission Date: 20180509
  Serious: No
  Sender: FDA-Public Use
  Company Number: None

PATIENT
  Age: 73 Year
  Sex: Male

DRUGS (1)
  1. WARFARIN [Suspect]
     Active Substance: WARFARIN
     Indication: ATRIAL FIBRILLATION
     Dates: start: 20150101, end: 20170822

REACTIONS (3)
  - Gastric haemorrhage [None]
  - Therapy cessation [None]
  - Large intestinal haemorrhage [None]

NARRATIVE: CASE EVENT DATE: 20170822
